FAERS Safety Report 21111185 (Version 7)
Quarter: 2022Q4

REPORT INFORMATION
  Report Type: Report from Study
  Country: DE (occurrence: None)
  Receive Date: 20220721
  Receipt Date: 20221208
  Transmission Date: 20230112
  Serious: Yes (Hospitalization)
  Sender: FDA-Public Use
  Company Number: DE-ROCHE-3118159

PATIENT
  Age: 79 Year
  Sex: Female
  Weight: 54.3 kg

DRUGS (22)
  1. ATEZOLIZUMAB [Suspect]
     Active Substance: ATEZOLIZUMAB
     Indication: Triple negative breast cancer
     Dosage: DATE OF LAST DOSE PRIOR TO SAE: 22/APR/2022, 25/MAY/2022 (FIRST OCCURRENCE OF ANEMIA) 06/JUL/2022 (S
     Route: 041
     Dates: start: 20220204
  2. PACLITAXEL [Suspect]
     Active Substance: PACLITAXEL
     Indication: Triple negative breast cancer
     Dosage: DATE OF LAST DOSE PRIOR TO SAE: 06/MAY/2022
     Route: 042
     Dates: start: 20220218
  3. CARBOPLATIN [Suspect]
     Active Substance: CARBOPLATIN
     Indication: Triple negative breast cancer
     Dosage: DATE OF LAST DOSE OF CARBOPLATIN PRIOR TO SAE: 06/MAY/2022
     Route: 042
     Dates: start: 20220218
  4. EPIRUBICIN [Suspect]
     Active Substance: EPIRUBICIN
     Indication: Triple negative breast cancer
     Dosage: MOST RECENT DOSE 06/JUL/2022
     Route: 042
     Dates: start: 20220525
  5. CYCLOPHOSPHAMIDE [Suspect]
     Active Substance: CYCLOPHOSPHAMIDE
     Indication: Triple negative breast cancer
     Dosage: MOST RECENT DOSE 06/JUL/2022 (SECOND EPISODE ANEMIA)
     Route: 042
     Dates: start: 20220525
  6. ZOFRAN [Concomitant]
     Active Substance: ONDANSETRON HYDROCHLORIDE
     Dates: start: 20220204
  7. PREDNISOLONE [Concomitant]
     Active Substance: PREDNISOLONE
     Dates: start: 20150809, end: 20150818
  8. ASPIRIN [Concomitant]
     Active Substance: ASPIRIN
     Dates: start: 20150809, end: 20220121
  9. SIMVASTATIN [Concomitant]
     Active Substance: SIMVASTATIN
     Dates: start: 20150809
  10. DEXAMETHASONE [Concomitant]
     Active Substance: DEXAMETHASONE
     Dates: start: 20220218, end: 20220506
  11. CIMETIDIN [Concomitant]
     Dates: start: 20220218, end: 20220506
  12. CIMETIDIN [Concomitant]
     Dates: start: 20220218
  13. ONDANSETRON [Concomitant]
     Active Substance: ONDANSETRON
     Dates: start: 20220218, end: 20220506
  14. FILGRASTIM [Concomitant]
     Active Substance: FILGRASTIM
     Route: 058
     Dates: start: 20220303, end: 20220303
  15. FILGRASTIM [Concomitant]
     Active Substance: FILGRASTIM
     Dates: start: 20220406, end: 20220406
  16. FILGRASTIM [Concomitant]
     Active Substance: FILGRASTIM
     Dates: start: 20220419, end: 20220419
  17. VITAMIN C [Concomitant]
     Active Substance: ASCORBIC ACID
     Dates: start: 20220405, end: 20220405
  18. CHOLECALCIFEROL [Concomitant]
     Active Substance: CHOLECALCIFEROL
     Dosage: 20000 I.E.
     Dates: start: 20220513
  19. CLEMASTINE [Concomitant]
     Active Substance: CLEMASTINE
     Dosage: 2 MG WEEKLY
     Dates: start: 20220218, end: 20220506
  20. POLYETHYLENE GLYCOLS [Concomitant]
     Active Substance: POLYETHYLENE GLYCOLS
     Dosage: SACHET
  21. CIPROFLOXACIN [Concomitant]
     Active Substance: CIPROFLOXACIN
  22. PANTOPRAZOLE SODIUM [Concomitant]
     Active Substance: PANTOPRAZOLE SODIUM
     Dates: start: 20220428

REACTIONS (4)
  - Intervertebral disc protrusion [Recovered/Resolved with Sequelae]
  - Anaemia [Recovered/Resolved]
  - C-reactive protein increased [Recovered/Resolved with Sequelae]
  - Infection [Recovered/Resolved with Sequelae]

NARRATIVE: CASE EVENT DATE: 20220513
